FAERS Safety Report 7599087-7 (Version None)
Quarter: 2011Q3

REPORT INFORMATION
  Report Type: 
  Country: None (occurrence: None)
  Receive Date: 20110711
  Receipt Date: 20110629
  Transmission Date: 20111222
  Serious: Yes (Other)
  Sender: FDA-Public Use
  Company Number: US-BAYER-2011-030678

PATIENT
  Age: 49 Year
  Sex: Male
  Weight: 97.052 kg

DRUGS (1)
  1. MAGNEVIST [Suspect]
     Indication: ANGIOGRAM
     Dosage: 20 ML, ONCE RATE 2ML/SEC
     Route: 042
     Dates: start: 20110407, end: 20110407

REACTIONS (1)
  - URTICARIA [None]
